FAERS Safety Report 12784730 (Version 1)
Quarter: 2016Q3

REPORT INFORMATION
  Report Type: Spontaneous
  Country: US (occurrence: US)
  Receive Date: 20160927
  Receipt Date: 20160927
  Transmission Date: 20161109
  Serious: No
  Sender: FDA-Public Use
  Company Number: US-BAYER-2016-187338

PATIENT
  Age: 57 Year
  Sex: Female
  Weight: 61.22 kg

DRUGS (3)
  1. ALEVE [Suspect]
     Active Substance: NAPROXEN SODIUM
     Indication: PAIN
     Dosage: 2 DF PRN, CONSUMER TOOK THE PRODUCT 1 MONTH OR MORE AGO FOR 2-3 DAYS
     Route: 048
  2. ALEVE [Suspect]
     Active Substance: NAPROXEN SODIUM
     Indication: PAIN
     Dosage: 2 DF PRN, CONSUMER STARTED THE PRODUCT YEARS AGO AND STOPPED 1+ MONTHS AGO
     Route: 048
  3. CITALOPRAM [Concomitant]
     Active Substance: CITALOPRAM HYDROBROMIDE
     Dosage: UNK

REACTIONS (1)
  - Drug ineffective [None]
